FAERS Safety Report 7853652-8 (Version None)
Quarter: 2011Q3

REPORT INFORMATION
  Report Type: 
  Country: None (occurrence: None)
  Receive Date: 20110915
  Receipt Date: 20110516
  Transmission Date: 20111222
  Serious: Yes (Other)
  Sender: FDA-Public Use
  Company Number: DSA_46727_2011

PATIENT
  Sex: Female

DRUGS (7)
  1. TRIHEXYPHEN [Concomitant]
  2. XANAX [Concomitant]
  3. BACLOFEN [Concomitant]
  4. CYMBALTA [Concomitant]
  5. ACETAMINOPHEN [Concomitant]
  6. XENAZINE [Suspect]
     Indication: HUNTINGTON'S DISEASE
     Dosage: (12.5 MG TID ORAL)
     Route: 048
     Dates: start: 20110114
  7. FLEXERIL [Concomitant]

REACTIONS (1)
  - SUICIDAL IDEATION [None]
